FAERS Safety Report 22201939 (Version 1)
Quarter: 2023Q2

REPORT INFORMATION
  Report Type: Spontaneous
  Country: US (occurrence: None)
  Receive Date: 20230411
  Receipt Date: 20230411
  Transmission Date: 20230722
  Serious: Yes (Hospitalization)
  Sender: FDA-Public Use
  Company Number: None

PATIENT
  Age: 60 Year
  Sex: Female
  Weight: 81 kg

DRUGS (6)
  1. OZEMPIC [Suspect]
     Active Substance: SEMAGLUTIDE
     Indication: Diabetes mellitus
     Dates: start: 20230328, end: 20230404
  2. LISINOPRIL [Concomitant]
     Active Substance: LISINOPRIL
  3. ASPIRIN [Concomitant]
     Active Substance: ASPIRIN
  4. ATORVASTATIN [Concomitant]
     Active Substance: ATORVASTATIN
  5. GABAPENTIN [Concomitant]
     Active Substance: GABAPENTIN
  6. Basaglar Kwikpen U-100 [Concomitant]

REACTIONS (7)
  - Acute kidney injury [None]
  - Hypertensive urgency [None]
  - Diarrhoea [None]
  - Hypophagia [None]
  - Decreased appetite [None]
  - Chills [None]
  - Palpitations [None]

NARRATIVE: CASE EVENT DATE: 20230406
